FAERS Safety Report 5061113-7 (Version None)
Quarter: 2006Q3

REPORT INFORMATION
  Report Type: 
  Country: None (occurrence: None)
  Receive Date: 20060720
  Receipt Date: 20060705
  Transmission Date: 20061208
  Serious: Yes (Other)
  Sender: FDA-Public Use
  Company Number: ABWIS-06-0312

PATIENT
  Age: 69 Year
  Sex: Female
  Weight: 78.9259 kg

DRUGS (5)
  1. ABRAXANE [Suspect]
     Indication: BREAST CANCER METASTATIC
     Dosage: (260 MG/M2, EVERY 3 WEEKS), INTRAVENOUS
     Route: 042
     Dates: start: 20060508, end: 20060621
  2. ZOMETA [Concomitant]
  3. COMPAZINE [Concomitant]
  4. TOPROL-XL [Concomitant]
  5. ASPIRIN TAB [Concomitant]

REACTIONS (7)
  - ALANINE AMINOTRANSFERASE INCREASED [None]
  - ANAEMIA [None]
  - ANOREXIA [None]
  - ASPARTATE AMINOTRANSFERASE INCREASED [None]
  - BLOOD ALKALINE PHOSPHATASE INCREASED [None]
  - NEUTROPENIA [None]
  - WEIGHT DECREASED [None]
